FAERS Safety Report 6982979-7 (Version None)
Quarter: 2010Q3

REPORT INFORMATION
  Report Type: 
  Country: None (occurrence: None)
  Receive Date: 20100914
  Receipt Date: 20100506
  Transmission Date: 20110219
  Serious: No
  Sender: FDA-Public Use
  Company Number: US-PFIZER INC-2010058116

PATIENT
  Sex: Male
  Weight: 96.145 kg

DRUGS (5)
  1. LYRICA [Suspect]
     Indication: SURGERY
     Dosage: 75 MG, 1X/DAY
     Route: 048
     Dates: start: 20100505
  2. LYRICA [Suspect]
     Indication: SLEEP DISORDER
  3. LYRICA [Suspect]
     Indication: PAIN IN EXTREMITY
  4. IBUPROFEN [Concomitant]
     Indication: ARTHRALGIA
     Dosage: 300 MG, 2X/DAY
     Route: 048
     Dates: start: 19920101
  5. SUDAFED 12 HOUR [Concomitant]
     Indication: SINUS DISORDER
     Dosage: 2.5 MG, 2X/DAY
     Route: 048

REACTIONS (5)
  - EUPHORIC MOOD [None]
  - FEELING ABNORMAL [None]
  - HANGOVER [None]
  - SOMNOLENCE [None]
  - UNEVALUABLE EVENT [None]
